FAERS Safety Report 12810290 (Version 1)
Quarter: 2016Q4

REPORT INFORMATION
  Report Type: Spontaneous
  Country: FR (occurrence: FR)
  Receive Date: 20161005
  Receipt Date: 20161005
  Transmission Date: 20170207
  Serious: Yes (Hospitalization)
  Sender: FDA-Public Use
  Company Number: FR-PFIZER INC-2016459006

PATIENT
  Age: 70 Year
  Sex: Male

DRUGS (7)
  1. CARDENSIEL [Suspect]
     Active Substance: BISOPROLOL FUMARATE
     Dosage: 2.5 MG, 2X/DAY
     Route: 048
     Dates: end: 201512
  2. ISUPREL [Concomitant]
     Active Substance: ISOPROTERENOL HYDROCHLORIDE
     Dosage: UNK
     Dates: end: 20151227
  3. TRIATEC [Suspect]
     Active Substance: RAMIPRIL
     Dosage: 1.25 MG, DAILY
     Route: 048
     Dates: end: 201512
  4. LASILIX /00032601/ [Concomitant]
     Active Substance: FUROSEMIDE
  5. CORDARONE [Suspect]
     Active Substance: AMIODARONE HYDROCHLORIDE
     Indication: ATRIAL FIBRILLATION
     Dosage: 200 MG, DAILY
     Route: 048
     Dates: end: 201512
  6. EUPANTOL [Concomitant]
     Active Substance: PANTOPRAZOLE SODIUM
  7. COUMADIN [Concomitant]
     Active Substance: WARFARIN SODIUM

REACTIONS (2)
  - Bradycardia [Recovered/Resolved]
  - Acute kidney injury [Recovering/Resolving]

NARRATIVE: CASE EVENT DATE: 201512
